FAERS Safety Report 11477572 (Version 1)
Quarter: 2015Q3

REPORT INFORMATION
  Report Type: Spontaneous
  Country: US (occurrence: US)
  Receive Date: 20150909
  Receipt Date: 20150909
  Transmission Date: 20151125
  Serious: No
  Sender: FDA-Public Use
  Company Number: US-JAZZ-2015-US-008566

PATIENT
  Age: 43 Year
  Sex: Female
  Weight: 82.99 kg

DRUGS (8)
  1. SAVELLA [Concomitant]
     Active Substance: MILNACIPRAN HYDROCHLORIDE
     Indication: PRODUCT USED FOR UNKNOWN INDICATION
     Dosage: UNK
     Dates: start: 20130515
  2. XYREM [Suspect]
     Active Substance: SODIUM OXYBATE
     Dosage: 6 G, BID
     Route: 048
     Dates: start: 201111
  3. LEVOXYL [Concomitant]
     Active Substance: LEVOTHYROXINE SODIUM
     Indication: HYPOTHYROIDISM
     Dosage: UNK
  4. IBUPROFEN. [Concomitant]
     Active Substance: IBUPROFEN
     Indication: LICHEN PLANUS
     Dosage: UNK
  5. XYREM [Suspect]
     Active Substance: SODIUM OXYBATE
     Indication: HYPERSOMNIA
     Dosage: 3.5 G, BID
     Route: 048
     Dates: start: 200702, end: 200703
  6. XYREM [Suspect]
     Active Substance: SODIUM OXYBATE
     Dosage: DOSE ADJUSTMENTS
     Route: 048
  7. TRAMADOL. [Concomitant]
     Active Substance: TRAMADOL
     Indication: FIBROMYALGIA
     Dosage: UNK
  8. NORFLEX [Concomitant]
     Active Substance: ORPHENADRINE CITRATE
     Indication: FIBROMYALGIA
     Dosage: UNK

REACTIONS (5)
  - Lichen planus [Not Recovered/Not Resolved]
  - Mouth swelling [Unknown]
  - Wrong technique in product usage process [Unknown]
  - Prescribed overdose [Unknown]
  - Insomnia [Recovered/Resolved]

NARRATIVE: CASE EVENT DATE: 20150524
